FAERS Safety Report 4844677-5 (Version None)
Quarter: 2005Q4

REPORT INFORMATION
  Report Type: 
  Country: None (occurrence: None)
  Receive Date: 20051129
  Receipt Date: 20051117
  Transmission Date: 20060501
  Serious: Yes (Hospitalization)
  Sender: FDA-Public Use
  Company Number: 05USA0230

PATIENT
  Age: 42 Year
  Sex: Male
  Weight: 96.1 kg

DRUGS (9)
  1. GLIADEL [Suspect]
     Indication: GLIOBLASTOMA MULTIFORME
     Dosage: 7.7 MG/WAFER (NUMBER OF WAFERS IMPLANTED NOT REPORTED)
     Dates: start: 20050714
  2. 06-BENZYLGUANINE (ANTINEOPLASTIC AGENTS) (INJECTION FOR INFUSION) [Suspect]
     Indication: GLIOBLASTOMA MULTIFORME
     Dosage: 30 MG/M2 INFUSION X 5 DAYS
     Dates: start: 20050714, end: 20050718
  3. CARBATROL [Concomitant]
  4. DECADRON [Concomitant]
  5. EFFEXOR XR [Concomitant]
  6. MULTIVITAMIN [Concomitant]
  7. PRILOSEC [Concomitant]
  8. DARVOCET [Concomitant]
  9. COUMADIN [Concomitant]

REACTIONS (7)
  - BLOOD GLUCOSE INCREASED [None]
  - CONTUSION [None]
  - HAEMATOCRIT DECREASED [None]
  - HAEMOGLOBIN DECREASED [None]
  - INTERNATIONAL NORMALISED RATIO INCREASED [None]
  - NEUTROPHIL PERCENTAGE INCREASED [None]
  - PROTHROMBIN TIME PROLONGED [None]
